FAERS Safety Report 4338794-6 (Version None)
Quarter: 2004Q2

REPORT INFORMATION
  Report Type: 
  Country: None (occurrence: None)
  Receive Date: 20040409
  Receipt Date: 20040330
  Transmission Date: 20050107
  Serious: Yes (Other)
  Sender: FDA-Public Use
  Company Number: HQWYE315701APR04

PATIENT
  Age: 15 Year
  Sex: Male
  Weight: 61.29 kg

DRUGS (1)
  1. ADVIL [Suspect]
     Dosage: 1 GEL CAPLET ONE TIME, ORAL
     Route: 048
     Dates: start: 20040322, end: 20040322

REACTIONS (4)
  - DRUG HYPERSENSITIVITY [None]
  - HIGH DENSITY LIPOPROTEIN INCREASED [None]
  - HYPOACUSIS [None]
  - SWELLING FACE [None]
